FAERS Safety Report 8312943-7 (Version None)
Quarter: 2012Q2

REPORT INFORMATION
  Report Type: 
  Country: None (occurrence: None)
  Receive Date: 20120426
  Receipt Date: 20120424
  Transmission Date: 20120825
  Serious: No
  Sender: FDA-Public Use
  Company Number: DE-US-EMD SERONO, INC.-7117205

PATIENT
  Sex: Female
  Weight: 109 kg

DRUGS (1)
  1. REBIF [Suspect]
     Indication: MULTIPLE SCLEROSIS
     Route: 058
     Dates: start: 20070101, end: 20120228

REACTIONS (3)
  - FEAR OF NEEDLES [None]
  - INJECTION SITE MASS [None]
  - INJECTION SITE NECROSIS [None]
